FAERS Safety Report 8942715 (Version 9)
Quarter: 2016Q3

REPORT INFORMATION
  Report Type: Spontaneous
  Country: GB (occurrence: GB)
  Receive Date: 20121204
  Receipt Date: 20160707
  Transmission Date: 20161109
  Serious: Yes (Hospitalization, Other)
  Sender: FDA-Public Use
  Company Number: GB-PFIZER INC-2012290986

PATIENT
  Age: 37 Year
  Sex: Male
  Weight: 88.9 kg

DRUGS (12)
  1. CIPROFLOXACIN. [Suspect]
     Active Substance: CIPROFLOXACIN
     Indication: PRODUCT USED FOR UNKNOWN INDICATION
     Dosage: UNK
     Dates: start: 201206
  2. OMEPRAZOLE. [Suspect]
     Active Substance: OMEPRAZOLE
     Dosage: UNK
     Dates: start: 201204, end: 201210
  3. LAXIDO [Concomitant]
     Active Substance: POLYETHYLENE GLYCOL 3350\POTASSIUM CHLORIDE\SODIUM BICARBONATE\SODIUM CHLORIDE
     Dosage: UNK
     Route: 065
     Dates: start: 201211
  4. OMEPRAZOLE. [Suspect]
     Active Substance: OMEPRAZOLE
     Indication: ABDOMINAL PAIN
     Dosage: 20 MG, UNK
     Dates: start: 201106
  5. MINOCYCLINE [Suspect]
     Active Substance: MINOCYCLINE\MINOCYCLINE HYDROCHLORIDE
     Indication: PRODUCT USED FOR UNKNOWN INDICATION
     Dosage: UNK
  6. DOXYCYCLINE MONOHYDRATE [Suspect]
     Active Substance: DOXYCYCLINE
     Indication: URINARY TRACT INFECTION
     Dosage: UNK
     Dates: start: 201111
  7. AMOXICILLIN. [Concomitant]
     Active Substance: AMOXICILLIN
     Indication: PRODUCT USED FOR UNKNOWN INDICATION
  8. ERYTHROMYCIN. [Suspect]
     Active Substance: ERYTHROMYCIN
  9. LAXIDO [Concomitant]
     Active Substance: POLYETHYLENE GLYCOL 3350\POTASSIUM CHLORIDE\SODIUM BICARBONATE\SODIUM CHLORIDE
     Indication: PRODUCT USED FOR UNKNOWN INDICATION
     Dosage: UNK
     Dates: start: 2011
  10. OMEPRAZOLE. [Suspect]
     Active Substance: OMEPRAZOLE
     Dosage: UNK
     Dates: start: 20110930
  11. SEROQUEL [Suspect]
     Active Substance: QUETIAPINE FUMARATE
     Indication: ANXIETY
     Dosage: UNK
  12. NITROFURANTOIN. [Suspect]
     Active Substance: NITROFURANTOIN
     Indication: PRODUCT USED FOR UNKNOWN INDICATION
     Dosage: UNK
     Dates: start: 201211

REACTIONS (39)
  - Gastric ulcer [Unknown]
  - Tendonitis [Unknown]
  - Mass [Unknown]
  - Gastrointestinal disorder [Unknown]
  - Toxicity to various agents [Not Recovered/Not Resolved]
  - Vomiting [Unknown]
  - Bone pain [Unknown]
  - Abdominal discomfort [Not Recovered/Not Resolved]
  - Dermatitis [Unknown]
  - Hormone level abnormal [Unknown]
  - Malaise [Unknown]
  - Skin exfoliation [Unknown]
  - Photosensitivity reaction [Unknown]
  - Thirst [Unknown]
  - Prostatic disorder [Unknown]
  - Breast inflammation [Unknown]
  - Abdominal pain [Unknown]
  - Irritable bowel syndrome [Unknown]
  - Tendon disorder [Unknown]
  - Tooth injury [Unknown]
  - Hair disorder [Unknown]
  - Skin discolouration [Unknown]
  - Nausea [Unknown]
  - Gastritis [Not Recovered/Not Resolved]
  - Visual impairment [Unknown]
  - Skin disorder [Unknown]
  - Hair colour changes [Unknown]
  - Skin depigmentation [Unknown]
  - Gastrooesophageal reflux disease [Unknown]
  - Alopecia [Unknown]
  - Drug ineffective [Unknown]
  - Bacterial infection [Unknown]
  - Dehydration [Unknown]
  - Headache [Unknown]
  - Tooth disorder [Unknown]
  - Melanocytic naevus [Unknown]
  - Chromaturia [Unknown]
  - Dental caries [Unknown]
  - Protein total abnormal [Not Recovered/Not Resolved]

NARRATIVE: CASE EVENT DATE: 201103
